FAERS Safety Report 9472093 (Version 5)
Quarter: 2015Q4

REPORT INFORMATION
  Report Type: Report from Study
  Country: CA (occurrence: CA)
  Receive Date: 20130823
  Receipt Date: 20151118
  Transmission Date: 20160305
  Serious: Yes (Other)
  Sender: FDA-Public Use
  Company Number: CA-ROCHE-1196329

PATIENT
  Age: 32 Year
  Sex: Female
  Weight: 50 kg

DRUGS (3)
  1. ACTEMRA [Suspect]
     Active Substance: TOCILIZUMAB
     Indication: RHEUMATOID ARTHRITIS
     Dosage: 22/JUL/2013 : RECEIVED THE MOST RECENT INFIUSION
     Route: 042
     Dates: start: 20130117
  2. PLAQUENIL [Concomitant]
     Active Substance: HYDROXYCHLOROQUINE SULFATE
  3. SULFASALAZINE. [Concomitant]
     Active Substance: SULFASALAZINE

REACTIONS (14)
  - Arthralgia [Unknown]
  - Hypotension [Not Recovered/Not Resolved]
  - Nausea [Not Recovered/Not Resolved]
  - Bone contusion [Not Recovered/Not Resolved]
  - Pregnancy [Unknown]
  - Haematochezia [Not Recovered/Not Resolved]
  - Hot flush [Not Recovered/Not Resolved]
  - Diverticulitis [Unknown]
  - Abdominal pain [Not Recovered/Not Resolved]
  - Abnormal faeces [Not Recovered/Not Resolved]
  - Oedema [Unknown]
  - Post-traumatic pain [Not Recovered/Not Resolved]
  - Pain [Not Recovered/Not Resolved]
  - Nasopharyngitis [Unknown]

NARRATIVE: CASE EVENT DATE: 20130509
